FAERS Safety Report 7214287-3 (Version None)
Quarter: 2011Q1

REPORT INFORMATION
  Report Type: 
  Country: None (occurrence: None)
  Receive Date: 20110107
  Receipt Date: 20101228
  Transmission Date: 20110831
  Serious: Yes (Other)
  Sender: FDA-Public Use
  Company Number: US-BRISTOL-MYERS SQUIBB COMPANY-15286644

PATIENT
  Age: 66 Year
  Sex: Male
  Weight: 97 kg

DRUGS (13)
  1. PACLITAXEL [Suspect]
     Indication: NON-SMALL CELL LUNG CANCER
     Route: 042
     Dates: start: 20100712
  2. ASCORBIC ACID [Concomitant]
  3. AZELASTINE HCL [Concomitant]
  4. UBIDECARENONE [Concomitant]
     Dosage: CO-ENZYME Q10
  5. DEXAMETHASONE [Suspect]
  6. CETUXIMAB [Suspect]
     Indication: NON-SMALL CELL LUNG CANCER
     Dosage: 400MG/M2 (CYCLE 1 DAY1);ON 19JUL2010 250MG/M2 IV CYCLE 1 DAY8.LAST DOSE REC ON 27SEP10
     Route: 042
     Dates: start: 20100712
  7. CARBOPLATIN [Suspect]
     Indication: NON-SMALL CELL LUNG CANCER
     Dosage: 1DF= AUC=6.
     Route: 042
     Dates: start: 20100712
  8. TOBRAMYCIN [Suspect]
     Dosage: DROPS
  9. AMLODIPINE [Concomitant]
  10. CHOLECALCIFEROL [Concomitant]
  11. NASONEX [Concomitant]
  12. SYMBICORT [Concomitant]
  13. SPIRIVA [Concomitant]
     Dosage: SPIRIVA HANDII

REACTIONS (4)
  - ULCERATIVE KERATITIS [None]
  - KERATITIS [None]
  - CORNEAL OPACITY [None]
  - RETINOPATHY [None]
